FAERS Safety Report 18273199 (Version 1)
Quarter: 2020Q3

REPORT INFORMATION
  Report Type: Report from Study
  Country: GB (occurrence: GB)
  Receive Date: 20200916
  Receipt Date: 20200916
  Transmission Date: 20201103
  Serious: Yes (Hospitalization)
  Sender: FDA-Public Use
  Company Number: GB-PFIZER INC-2020353834

PATIENT
  Weight: 62 kg

DRUGS (13)
  1. EMOLENT [Concomitant]
     Indication: DRY SKIN
     Dosage: UNK, AS NEEDED (1.0 OTHER, APPLICATION)
     Dates: start: 20180808
  2. LEVOMEPROMAZINE [Concomitant]
     Active Substance: LEVOMEPROMAZINE
     Indication: NAUSEA
     Dosage: 12.5 MG, AS NEEDED
     Dates: start: 20180805
  3. MITOXANTRONE HCL [Suspect]
     Active Substance: MITOXANTRONE HYDROCHLORIDE
     Indication: ACUTE MYELOID LEUKAEMIA
     Dosage: 20 MG/M2, 1X/DAY
     Route: 042
     Dates: start: 20180801, end: 20180803
  4. CYTARABINE. [Suspect]
     Active Substance: CYTARABINE
     Dosage: 170 MG, 2X/DAY
     Route: 042
     Dates: start: 20180801, end: 20180809
  5. DEXAMETHASONE. [Concomitant]
     Active Substance: DEXAMETHASONE
     Indication: ADRENOCORTICAL STEROID THERAPY
     Dosage: 2 DROP, EVERY 4 HRS, 2.0 (OTHER)
     Dates: start: 20180803
  6. MAGNESIUM GLYCEROPHOSPHATE [Concomitant]
     Active Substance: MAGNESIUM GLYCEROPHOSPHATE
     Indication: SUPPLEMENTATION THERAPY
     Dosage: 4 MMOL, 3X/DAY (4.0 OTHER)
     Dates: start: 20180805
  7. ONDANSETRON [Concomitant]
     Active Substance: ONDANSETRON
     Indication: VOMITING
  8. CIPROFLOXACIN. [Concomitant]
     Active Substance: CIPROFLOXACIN
     Indication: ANTIBIOTIC THERAPY
     Dosage: 250 MG, 2X/DAY
     Dates: start: 20180802
  9. LORATADINE. [Concomitant]
     Active Substance: LORATADINE
     Indication: ANTIALLERGIC THERAPY
     Dosage: 10 MG, 1X/DAY
     Dates: start: 20180802
  10. VORICONAZOLE. [Concomitant]
     Active Substance: VORICONAZOLE
     Indication: ANTIFUNGAL TREATMENT
     Dosage: 200 MG, 2X/DAY
     Dates: start: 20180802, end: 20180815
  11. LEVOMEPROMAZINE [Concomitant]
     Active Substance: LEVOMEPROMAZINE
     Indication: VOMITING
  12. CHLORPHENAMIMINE MALEATE [Concomitant]
     Indication: ANTIALLERGIC THERAPY
     Dosage: 10 MG, AS NEEDED
     Dates: start: 20180813, end: 20180813
  13. ONDANSETRON [Concomitant]
     Active Substance: ONDANSETRON
     Indication: NAUSEA
     Dosage: 8 MG, AS NEEDED
     Dates: start: 20180801

REACTIONS (1)
  - Febrile neutropenia [Recovered/Resolved]

NARRATIVE: CASE EVENT DATE: 20180814
